FAERS Safety Report 7502433-3 (Version None)
Quarter: 2011Q2

REPORT INFORMATION
  Report Type: 
  Country: None (occurrence: None)
  Receive Date: 20110523
  Receipt Date: 20110523
  Transmission Date: 20111010
  Serious: Yes (Other)
  Sender: FDA-Public Use
  Company Number: None

PATIENT
  Sex: Male
  Weight: 34.4734 kg

DRUGS (4)
  1. RISPERIDONE [Suspect]
     Dosage: 2MG / 1 MG QHS / QAM PO
     Route: 048
     Dates: start: 20080101, end: 20110401
  2. FLUOXETINE HCL [Concomitant]
  3. ADDERALL 10 [Concomitant]
  4. VYVANSE [Concomitant]

REACTIONS (3)
  - TREMOR [None]
  - INSOMNIA [None]
  - AKATHISIA [None]
